FAERS Safety Report 10990747 (Version 9)
Quarter: 2016Q2

REPORT INFORMATION
  Report Type: Spontaneous
  Country: US (occurrence: US)
  Receive Date: 20150406
  Receipt Date: 20160523
  Transmission Date: 20160815
  Serious: Yes (Other)
  Sender: FDA-Public Use
  Company Number: US-PFIZER INC-2015117494

PATIENT
  Age: 48 Year
  Sex: Female
  Weight: 126 kg

DRUGS (8)
  1. TRAMADOL. [Concomitant]
     Active Substance: TRAMADOL
     Indication: RHEUMATOID ARTHRITIS
     Dosage: UNK
  2. CELEBREX [Concomitant]
     Active Substance: CELECOXIB
     Dosage: UNK
  3. LEUCOVORIN. [Concomitant]
     Active Substance: LEUCOVORIN
     Indication: RHEUMATOID ARTHRITIS
     Dosage: UNK
     Dates: start: 20140909
  4. WARFARIN [Interacting]
     Active Substance: WARFARIN
     Dosage: UNK
  5. METHOTREXATE [Concomitant]
     Active Substance: METHOTREXATE
     Indication: RHEUMATOID ARTHRITIS
     Dosage: UNK
     Dates: start: 20140611
  6. DICLOFENAC [Concomitant]
     Active Substance: DICLOFENAC
     Indication: RHEUMATOID ARTHRITIS
     Dosage: UNK
     Dates: start: 20150527
  7. XELJANZ [Suspect]
     Active Substance: TOFACITINIB CITRATE
     Indication: RHEUMATOID ARTHRITIS
     Dosage: 5 MG, 2X/DAY
     Route: 048
     Dates: start: 201503
  8. SUTENT [Interacting]
     Active Substance: SUNITINIB MALATE
     Dosage: UNK

REACTIONS (11)
  - Rheumatoid arthritis [Recovered/Resolved]
  - Lactose intolerance [Unknown]
  - Vomiting [Recovered/Resolved]
  - Musculoskeletal discomfort [Unknown]
  - Musculoskeletal pain [Unknown]
  - Nausea [Unknown]
  - Sinusitis [Recovered/Resolved]
  - Retching [Recovered/Resolved]
  - Headache [Unknown]
  - Drug interaction [Unknown]
  - Condition aggravated [Unknown]

NARRATIVE: CASE EVENT DATE: 201508
